FAERS Safety Report 16890879 (Version 1)
Quarter: 2019Q4

REPORT INFORMATION
  Report Type: Spontaneous
  Country: US (occurrence: US)
  Receive Date: 20191007
  Receipt Date: 20191007
  Transmission Date: 20200122
  Serious: No
  Sender: FDA-Public Use
  Company Number: US-HIKMA PHARMACEUTICALS USA INC.-US-H14001-19-04750

PATIENT
  Sex: Male

DRUGS (1)
  1. TESTOSTERONE ENANTHATE. [Suspect]
     Active Substance: TESTOSTERONE ENANTHATE
     Indication: HYPOGONADISM
     Route: 065

REACTIONS (5)
  - Depressed mood [Unknown]
  - Asthenia [Unknown]
  - Hypersomnia [Unknown]
  - Intentional product use issue [Unknown]
  - Drug ineffective [Unknown]
